FAERS Safety Report 24760666 (Version 2)
Quarter: 2025Q1

REPORT INFORMATION
  Report Type: Spontaneous
  Country: JP (occurrence: JP)
  Receive Date: 20241220
  Receipt Date: 20250124
  Transmission Date: 20250409
  Serious: Yes (Hospitalization)
  Sender: ELI LILLY AND COMPANY
  Company Number: JP-ELI_LILLY_AND_COMPANY-JP202408017901

PATIENT
  Age: 74 Year
  Sex: Male
  Weight: 55.7 kg

DRUGS (7)
  1. RETEVMO [Suspect]
     Active Substance: SELPERCATINIB
     Indication: Non-small cell lung cancer recurrent
     Dosage: 160 MG, BID
     Route: 048
     Dates: start: 20240719, end: 20240809
  2. RETEVMO [Suspect]
     Active Substance: SELPERCATINIB
     Dosage: 40 MG, BID
     Route: 048
  3. RETEVMO [Suspect]
     Active Substance: SELPERCATINIB
     Route: 048
     Dates: start: 20241108, end: 20241206
  4. MS CONTIN [Concomitant]
     Active Substance: MORPHINE SULFATE
     Indication: Pain
  5. SYMPROIC [Concomitant]
     Active Substance: NALDEMEDINE TOSYLATE
  6. MAGNESIUM OXIDE [Concomitant]
     Active Substance: MAGNESIUM OXIDE
  7. ANAMORELIN HYDROCHLORIDE [Concomitant]
     Active Substance: ANAMORELIN HYDROCHLORIDE
     Indication: Cachexia

REACTIONS (6)
  - Interstitial lung disease [Not Recovered/Not Resolved]
  - Decreased appetite [Unknown]
  - Liver disorder [Unknown]
  - Hyponatraemia [Recovered/Resolved]
  - Hypersensitivity [Recovered/Resolved]
  - Thrombocytopenia [Recovered/Resolved]

NARRATIVE: CASE EVENT DATE: 20240809
